FAERS Safety Report 20171792 (Version 1)
Quarter: 2021Q4

REPORT INFORMATION
  Report Type: Spontaneous
  Country: US (occurrence: US)
  Receive Date: 20211210
  Receipt Date: 20211210
  Transmission Date: 20220303
  Serious: Yes (Other)
  Sender: FDA-Public Use
  Company Number: US-SA-SAC20211208000619

PATIENT
  Sex: Male

DRUGS (1)
  1. TAXOTERE [Suspect]
     Active Substance: DOCETAXEL

REACTIONS (3)
  - Metastases to bone [Unknown]
  - Radiation proctitis [Unknown]
  - Prostate cancer metastatic [Unknown]
